FAERS Safety Report 4488706-X (Version None)
Quarter: 2004Q4

REPORT INFORMATION
  Report Type: 
  Country: None (occurrence: None)
  Receive Date: 20041025
  Receipt Date: 20041014
  Transmission Date: 20050328
  Serious: Yes (Death, Hospitalization)
  Sender: FDA-Public Use
  Company Number: 200412879GDS

PATIENT
  Age: 71 Year
  Sex: Male

DRUGS (3)
  1. MOXIFLOXACIN [Suspect]
     Indication: PHARYNGITIS
     Dosage: 400 MG, TOTAL DAILY, ORAL
     Route: 048
     Dates: start: 20040601, end: 20040101
  2. IBUPROFEN [Concomitant]
  3. INSULIN [Concomitant]

REACTIONS (2)
  - GENERAL PHYSICAL HEALTH DETERIORATION [None]
  - HEPATITIS TOXIC [None]
